FAERS Safety Report 8478652 (Version 3)
Quarter: 2018Q2

REPORT INFORMATION
  Report Type: Spontaneous
  Country: US (occurrence: US)
  Receive Date: 20120327
  Receipt Date: 20180622
  Transmission Date: 20180711
  Serious: Yes (Hospitalization, Other)
  Sender: FDA-Public Use
  Company Number: US-ROCHE-1052384

PATIENT
  Age: 62 Year
  Sex: Female

DRUGS (8)
  1. BONIVA [Suspect]
     Active Substance: IBANDRONATE SODIUM
     Indication: OSTEOPOROSIS
     Route: 048
     Dates: start: 200210, end: 200907
  2. ZOMETA [Suspect]
     Active Substance: ZOLEDRONIC ACID
     Indication: OSTEOPOROSIS
     Route: 065
     Dates: start: 200210, end: 200907
  3. BONIVA [Suspect]
     Active Substance: IBANDRONATE SODIUM
     Indication: OSTEOPENIA
     Route: 048
     Dates: start: 2009, end: 2009
  4. FOSAMAX [Suspect]
     Active Substance: ALENDRONATE SODIUM
     Indication: OSTEOPOROSIS
     Route: 048
     Dates: start: 200210, end: 200507
  5. FOSAMAX PLUS D [Suspect]
     Active Substance: ALENDRONATE SODIUM\CHOLECALCIFEROL
     Indication: OSTEOPENIA
     Route: 048
     Dates: start: 200508, end: 2009
  6. FOSAMAX [Suspect]
     Active Substance: ALENDRONATE SODIUM
     Indication: OSTEOPENIA
     Route: 048
     Dates: end: 200907
  7. RECLAST [Suspect]
     Active Substance: ZOLEDRONIC ACID
     Indication: OSTEOPENIA
     Dosage: SINGLE INJECTION
     Route: 065
     Dates: start: 2009
  8. RECLAST [Suspect]
     Active Substance: ZOLEDRONIC ACID
     Indication: OSTEOPOROSIS
     Route: 065
     Dates: start: 200210, end: 200907

REACTIONS (7)
  - Bone disorder [Unknown]
  - Stress fracture [Unknown]
  - Tibia fracture [Unknown]
  - Fibula fracture [Unknown]
  - Femur fracture [Recovered/Resolved]
  - Low turnover osteopathy [Unknown]
  - Patella fracture [Unknown]

NARRATIVE: CASE EVENT DATE: 20050705
